FAERS Safety Report 20801246 (Version 1)
Quarter: 2022Q2

REPORT INFORMATION
  Report Type: Spontaneous
  Country: US (occurrence: None)
  Receive Date: 20220506
  Receipt Date: 20220506
  Transmission Date: 20220720
  Serious: Yes (unspecified)
  Sender: FDA-Public Use
  Company Number: None

PATIENT
  Age: 35 Year
  Sex: Male
  Weight: 81 kg

DRUGS (1)
  1. BEBTELOVIMAB [Suspect]
     Active Substance: BEBTELOVIMAB
     Indication: COVID-19
     Dates: start: 20220504, end: 20220504

REACTIONS (10)
  - Infusion related reaction [None]
  - Chest discomfort [None]
  - Gastrointestinal sounds abnormal [None]
  - Dizziness [None]
  - Dizziness [None]
  - Swelling face [None]
  - Heart rate decreased [None]
  - Cough [None]
  - Cold sweat [None]
  - Hyperhidrosis [None]

NARRATIVE: CASE EVENT DATE: 20220504
